FAERS Safety Report 5622228-5 (Version None)
Quarter: 2008Q1

REPORT INFORMATION
  Report Type: 
  Country: None (occurrence: None)
  Receive Date: 20080211
  Receipt Date: 20080103
  Transmission Date: 20080703
  Serious: Yes (Other)
  Sender: FDA-Public Use
  Company Number: PHBS2008JP01742

PATIENT
  Weight: 3.7 kg

DRUGS (2)
  1. HYDRALAZINE HCL [Suspect]
     Route: 064
  2. INSULIN [Concomitant]
     Route: 064

REACTIONS (3)
  - CAESAREAN SECTION [None]
  - DRUG EXPOSURE DURING PREGNANCY [None]
  - PREMATURE BABY [None]
